FAERS Safety Report 9960296 (Version 3)
Quarter: 2014Q2

REPORT INFORMATION
  Report Type: Spontaneous
  Country: US (occurrence: None)
  Receive Date: 20140228
  Receipt Date: 20140408
  Transmission Date: 20141212
  Serious: Yes (Other)
  Sender: FDA-Public Use
  Company Number: AUR-APL-2014-01942

PATIENT
  Age: 84 Year
  Sex: Female
  Weight: 53.5 kg

DRUGS (7)
  1. ATENOLOL [Suspect]
     Indication: HYPERTENSION
     Dates: start: 20140130
  2. LISINOPRIL [Suspect]
     Indication: HYPERTENSION
  3. NAPROXEN (NAPROXEN) [Concomitant]
  4. COD OIL LIVER (COD OIL LIVER) [Concomitant]
  5. VITAMIN C (ASCORBIC ACID) [Concomitant]
  6. ASPIRIN(ACETYLSALICYLIC ACID) [Concomitant]
  7. SUTENT(SUNITINIB MALATE) [Concomitant]

REACTIONS (7)
  - Blood pressure increased [None]
  - Dizziness [None]
  - Feeling abnormal [None]
  - Feeling abnormal [None]
  - Sinusitis [None]
  - Epistaxis [None]
  - Hypertension [None]
